FAERS Safety Report 12126837 (Version 1)
Quarter: 2016Q1

REPORT INFORMATION
  Report Type: Spontaneous
  Country: ES (occurrence: ES)
  Receive Date: 20160229
  Receipt Date: 20160229
  Transmission Date: 20160526
  Serious: Yes (Other)
  Sender: FDA-Public Use
  Company Number: ES-DEP_13169_2015

PATIENT
  Age: 62 Year
  Sex: Female

DRUGS (12)
  1. FUROSEMIDE. [Concomitant]
     Active Substance: FUROSEMIDE
     Dosage: 40
  2. CALCIFEDIOL [Concomitant]
     Active Substance: CALCIFEDIOL
     Dosage: DF
  3. IRON SUCCINYL-PROTEIN COMPLEX [Concomitant]
     Dosage: DF
  4. SALBUTAMOL [Concomitant]
     Active Substance: ALBUTEROL
     Dosage: DF
  5. YANTIL RETARD UNK (TAPENTADOL) [Suspect]
     Active Substance: TAPENTADOL HYDROCHLORIDE
     Indication: PAIN IN EXTREMITY
     Route: 048
     Dates: start: 20151118, end: 20151121
  6. PANTOPRAZOLE SODIUM SESQUIHYDRATE [Concomitant]
     Active Substance: PANTOPRAZOLE SODIUM
     Dosage: DF
  7. IBUPROFEN. [Concomitant]
     Active Substance: IBUPROFEN
     Dosage: DF
  8. METHYLPREDNISOLONE. [Concomitant]
     Active Substance: METHYLPREDNISOLONE
  9. VALSARTAN. [Concomitant]
     Active Substance: VALSARTAN
     Dosage: 160
  10. ATORVASTATIN CALCIUM. [Concomitant]
     Active Substance: ATORVASTATIN CALCIUM
     Dosage: 20
  11. FOLIC ACID. [Concomitant]
     Active Substance: FOLIC ACID
     Dosage: DF
  12. ALPRAZOLAM. [Concomitant]
     Active Substance: ALPRAZOLAM
     Dosage: DF

REACTIONS (2)
  - Acute pulmonary oedema [Recovered/Resolved]
  - Dyspnoea [Recovered/Resolved]

NARRATIVE: CASE EVENT DATE: 20151118
